FAERS Safety Report 5471864-8 (Version None)
Quarter: 2007Q3

REPORT INFORMATION
  Report Type: 
  Country: None (occurrence: None)
  Receive Date: 20070928
  Receipt Date: 20070711
  Transmission Date: 20080115
  Serious: No
  Sender: FDA-Public Use
  Company Number: US-BRISTOL-MYERS SQUIBB COMPANY-13842083

PATIENT
  Age: 63 Year
  Sex: Male
  Weight: 152 kg

DRUGS (11)
  1. DEFINITY [Suspect]
     Route: 040
     Dates: start: 20070711
  2. ALEVE [Concomitant]
  3. GLUCOPHAGE [Concomitant]
  4. ASPIRIN [Concomitant]
  5. TRAZODONE HCL [Concomitant]
  6. FUROSEMIDE [Concomitant]
  7. MICRO-K [Concomitant]
  8. GLUCOTROL XL [Concomitant]
  9. MINOCYCLINE HCL [Concomitant]
  10. ZOLOFT [Concomitant]
  11. METROGEL [Concomitant]

REACTIONS (1)
  - BACK PAIN [None]
